FAERS Safety Report 21644708 (Version 1)
Quarter: 2022Q4

REPORT INFORMATION
  Report Type: Spontaneous
  Country: CN (occurrence: CN)
  Receive Date: 20221125
  Receipt Date: 20221125
  Transmission Date: 20230113
  Serious: Yes (Other)
  Sender: FDA-Public Use
  Company Number: CN-ALLERGAN-2238507US

PATIENT

DRUGS (2)
  1. OZURDEX [Suspect]
     Active Substance: DEXAMETHASONE
     Indication: Uveitis
     Dosage: 0.7 MG, SINGLE
     Route: 031
  2. DEX;TOBRAMYCIN Unk [Concomitant]
     Indication: Product used for unknown indication
     Dosage: UNK, QID

REACTIONS (2)
  - Posterior capsule opacification [Unknown]
  - Conjunctival haemorrhage [Recovered/Resolved]
